FAERS Safety Report 8175843-1 (Version None)
Quarter: 2012Q1

REPORT INFORMATION
  Report Type: 
  Country: None (occurrence: None)
  Receive Date: 20120228
  Receipt Date: 20120228
  Transmission Date: 20120608
  Serious: Yes (Life-Threatening, Other)
  Sender: FDA-Public Use
  Company Number: None

PATIENT
  Age: 57 Year
  Sex: Male
  Weight: 113.3993 kg

DRUGS (1)
  1. LISINOPRIL AND HYDROCHLOROTHIAZIDE [Suspect]
     Indication: HYPERTENSION
     Dosage: 20-12.5 TWO TABS ONCE DAILY
     Dates: start: 20120105, end: 20120211

REACTIONS (4)
  - LETHARGY [None]
  - CONFUSIONAL STATE [None]
  - HYPERTENSION [None]
  - HEADACHE [None]
